FAERS Safety Report 21828763 (Version 1)
Quarter: 2023Q1

REPORT INFORMATION
  Report Type: Spontaneous
  Country: US (occurrence: None)
  Receive Date: 20230105
  Receipt Date: 20230105
  Transmission Date: 20230417
  Serious: Yes (Hospitalization)
  Sender: FDA-Public Use
  Company Number: None

PATIENT
  Sex: Female

DRUGS (10)
  1. HUMIRA [Suspect]
     Active Substance: ADALIMUMAB
     Indication: Essential hypertension
     Dosage: 40MG/0.4ML  SUBCUTANEOUS??INJECT 1 PEN UNDER THE SKIN (SUBCUTANEOUS INJECTION) EVERY OTHER WEEK? ?
     Route: 058
     Dates: start: 20221215
  2. HUMIRA [Suspect]
     Active Substance: ADALIMUMAB
     Dosage: OTHER QUANTITY : 1 PEN;?FREQUENCY : EVERY OTHER WEEK;?
     Route: 058
  3. ENBREL [Concomitant]
  4. ESTRADIOL CRE [Concomitant]
  5. GABAPENTIN [Concomitant]
     Active Substance: GABAPENTIN
  6. HYDROXYZINE HYDROCHLORIDE [Concomitant]
     Active Substance: HYDROXYZINE HYDROCHLORIDE
  7. LATUDA [Concomitant]
     Active Substance: LURASIDONE HYDROCHLORIDE
  8. LOTEMAX [Concomitant]
     Active Substance: LOTEPREDNOL ETABONATE
  9. PREDNISONE [Suspect]
     Active Substance: PREDNISONE
  10. RESTASIS [Concomitant]
     Active Substance: CYCLOSPORINE

REACTIONS (4)
  - Loss of consciousness [None]
  - Urinary tract infection [None]
  - Condition aggravated [None]
  - Malaise [None]
